FAERS Safety Report 4747904-8 (Version None)
Quarter: 2005Q3

REPORT INFORMATION
  Report Type: 
  Country: None (occurrence: None)
  Receive Date: 20050818
  Receipt Date: 20030409
  Transmission Date: 20060218
  Serious: Yes (Other)
  Sender: FDA-Public Use
  Company Number: AU-AMGEN-AUS037709

PATIENT
  Sex: Female

DRUGS (9)
  1. ARANESP [Suspect]
     Indication: RENAL FAILURE CHRONIC
     Route: 058
     Dates: start: 20020506
  2. SODIUM BICARBONATE [Concomitant]
  3. ACETAMINOPHEN [Concomitant]
  4. IMDUR [Concomitant]
  5. ZOCOR [Concomitant]
  6. BETALOC [Concomitant]
  7. SOLPRIN [Concomitant]
  8. TRAMADOL HCL [Concomitant]
  9. ATACAND [Concomitant]

REACTIONS (6)
  - ANGIONEUROTIC OEDEMA [None]
  - HYPERSENSITIVITY [None]
  - RASH [None]
  - SKIN EXFOLIATION [None]
  - SKIN TEST POSITIVE [None]
  - URTICARIA [None]
